FAERS Safety Report 17153840 (Version 1)
Quarter: 2019Q4

REPORT INFORMATION
  Report Type: Spontaneous
  Country: US (occurrence: US)
  Receive Date: 20191213
  Receipt Date: 20191213
  Transmission Date: 20200122
  Serious: No
  Sender: FDA-Public Use
  Company Number: US-TEVA-2019-US-1151010

PATIENT
  Sex: Female

DRUGS (2)
  1. CLONAZEPAM TEVA [Suspect]
     Active Substance: CLONAZEPAM
     Route: 065
  2. CLONAZEPAM TEVA [Suspect]
     Active Substance: CLONAZEPAM
     Route: 065

REACTIONS (10)
  - Paradoxical drug reaction [Unknown]
  - Flushing [Unknown]
  - Erythema [Unknown]
  - Lacrimation increased [Unknown]
  - Swelling face [Unknown]
  - Heart rate increased [Unknown]
  - Pruritus [Unknown]
  - Burning sensation [Unknown]
  - Eye swelling [Unknown]
  - Drug hypersensitivity [Unknown]
